FAERS Safety Report 14156215 (Version 1)
Quarter: 2017Q4

REPORT INFORMATION
  Report Type: Spontaneous
  Country: US (occurrence: US)
  Receive Date: 20171103
  Receipt Date: 20171103
  Transmission Date: 20180321
  Serious: Yes (Other)
  Sender: FDA-Public Use
  Company Number: US-AUROBINDO-AUR-APL-2017-42777

PATIENT
  Age: 62 Year
  Sex: Male

DRUGS (1)
  1. HYDROMORPHONE HYDROCHLORIDE TABLETS [Suspect]
     Active Substance: HYDROMORPHONE HYDROCHLORIDE

REACTIONS (7)
  - Accidental exposure to product [Recovered/Resolved]
  - Necrosis [Recovered/Resolved]
  - Vasculitis [Recovered/Resolved]
  - Ischaemia [Recovered/Resolved]
  - Arterial occlusive disease [Recovered/Resolved]
  - Drug abuse [Recovered/Resolved]
  - Arterial thrombosis [Recovered/Resolved]
